FAERS Safety Report 13836325 (Version 10)
Quarter: 2018Q2

REPORT INFORMATION
  Report Type: Report from Study
  Country: BR (occurrence: BR)
  Receive Date: 20170804
  Receipt Date: 20180419
  Transmission Date: 20180711
  Serious: Yes (Other)
  Sender: FDA-Public Use
  Company Number: PHHY2017BR113601

PATIENT
  Age: 57 Year
  Sex: Female
  Weight: 67.8 kg

DRUGS (7)
  1. COSENTYX [Suspect]
     Active Substance: SECUKINUMAB
     Indication: PSORIASIS
     Dosage: 150 MG, Q2MO
     Route: 058
     Dates: start: 201703
  2. COSENTYX [Suspect]
     Active Substance: SECUKINUMAB
     Indication: PSORIATIC ARTHROPATHY
     Dosage: 300 MG, QW
     Route: 058
     Dates: start: 20170314
  3. COSENTYX [Suspect]
     Active Substance: SECUKINUMAB
     Dosage: 300 MG, QMO
     Route: 058
     Dates: start: 20170609
  4. COSENTYX [Suspect]
     Active Substance: SECUKINUMAB
     Dosage: 300 MG, QMO
     Route: 058
     Dates: start: 20180226
  5. COSENTYX [Suspect]
     Active Substance: SECUKINUMAB
     Dosage: 300 MG, QMO
     Route: 058
     Dates: start: 201708
  6. INSULIN [Concomitant]
     Active Substance: INSULIN NOS
     Indication: DIABETES MELLITUS
     Dosage: 15 U, BID
     Route: 058
  7. INSULIN ILETIN I REGULAR [Concomitant]
     Indication: DIABETES MELLITUS
     Dosage: 10 U (7 TO 10 UNITS), QD
     Route: 058

REACTIONS (19)
  - Psoriatic arthropathy [Unknown]
  - Blister [Not Recovered/Not Resolved]
  - Pain in jaw [Unknown]
  - Infection [Not Recovered/Not Resolved]
  - Skin plaque [Not Recovered/Not Resolved]
  - Erythema [Unknown]
  - Neck pain [Unknown]
  - Arterial occlusive disease [Unknown]
  - Myocardial ischaemia [Not Recovered/Not Resolved]
  - Malaise [Unknown]
  - Erythrodermic psoriasis [Recovering/Resolving]
  - Chest pain [Recovering/Resolving]
  - Dizziness [Unknown]
  - Skin irritation [Not Recovered/Not Resolved]
  - Influenza [Unknown]
  - Cough [Unknown]
  - Vomiting [Unknown]
  - Psoriasis [Not Recovered/Not Resolved]
  - Pain [Unknown]

NARRATIVE: CASE EVENT DATE: 20170531
